FAERS Safety Report 14432379 (Version 1)
Quarter: 2018Q1

REPORT INFORMATION
  Report Type: Spontaneous
  Country: BE (occurrence: BE)
  Receive Date: 20180124
  Receipt Date: 20180124
  Transmission Date: 20180509
  Serious: Yes (Other)
  Sender: FDA-Public Use
  Company Number: PHHY2016BE185993

PATIENT
  Age: 78 Year
  Sex: Female
  Weight: 50 kg

DRUGS (14)
  1. LITICAN [Concomitant]
     Active Substance: ALIZAPRIDE HYDROCHLORIDE
     Indication: PRODUCT USED FOR UNKNOWN INDICATION
     Route: 065
  2. TRADONAL [Concomitant]
     Active Substance: TRAMADOL HYDROCHLORIDE
     Indication: PRODUCT USED FOR UNKNOWN INDICATION
     Dosage: UNK
     Route: 065
  3. AMOXICILLINE [Concomitant]
     Active Substance: AMOXICILLIN
     Indication: URINARY TRACT INFECTION
     Route: 065
  4. CARBOPLATIN. [Suspect]
     Active Substance: CARBOPLATIN
     Indication: OVARIAN CANCER
     Dosage: 2 AUC 3 WEEKS, ONE STOPMOST RECENT DOSE PRIOR TO ONSET OF THIRD EPISODE OF NEUTROPENIA 08/DEC/2016
     Route: 042
     Dates: start: 20160629, end: 20160727
  5. PACLITAXEL. [Suspect]
     Active Substance: PACLITAXEL
     Indication: OVARIAN CANCER
     Dosage: 3 WEEKS, ONE STOPWEEKMOST RECENT DOSE PRIOR TO ONSET OF THIRD EPISODE OF NEUTROPENIA 08/DEC/2016MO
     Route: 042
     Dates: start: 20160629, end: 20160720
  6. AVASTIN [Suspect]
     Active Substance: BEVACIZUMAB
     Indication: OVARIAN CANCER
     Dosage: 690 MG, TID
     Route: 042
     Dates: start: 20160629
  7. LASIX [Concomitant]
     Active Substance: FUROSEMIDE
     Indication: PRODUCT USED FOR UNKNOWN INDICATION
     Dosage: UNK
     Route: 065
  8. TEMESTA (LORAZEPAM) [Concomitant]
     Active Substance: LORAZEPAM
     Indication: PRODUCT USED FOR UNKNOWN INDICATION
     Dosage: UNK
     Route: 065
  9. URFADYN [Concomitant]
     Active Substance: NIFURTOINOL
     Indication: URINARY TRACT INFECTION
     Route: 065
  10. EMCONCOR [Concomitant]
     Active Substance: BISOPROLOL FUMARATE
     Indication: PRODUCT USED FOR UNKNOWN INDICATION
     Dosage: UNK
     Route: 065
  11. ZOLPIDEM [Concomitant]
     Active Substance: ZOLPIDEM\ZOLPIDEM TARTRATE
     Indication: PRODUCT USED FOR UNKNOWN INDICATION
     Dosage: UNK
     Route: 065
  12. INNOHEP [Concomitant]
     Active Substance: TINZAPARIN SODIUM
     Indication: PRODUCT USED FOR UNKNOWN INDICATION
     Dosage: UNK
     Route: 065
  13. REMERGON [Concomitant]
     Active Substance: MIRTAZAPINE
     Indication: PRODUCT USED FOR UNKNOWN INDICATION
     Dosage: UNK
     Route: 065
  14. PANTOMED (PANTOPRAZOLE SODIUM SESQUIHYDRATE) [Concomitant]
     Active Substance: PANTOPRAZOLE SODIUM
     Indication: PRODUCT USED FOR UNKNOWN INDICATION
     Dosage: UNK
     Route: 065

REACTIONS (10)
  - Fatigue [Recovering/Resolving]
  - Tinnitus [Recovered/Resolved]
  - Mucosal inflammation [Recovered/Resolved]
  - Urinary tract infection [Recovered/Resolved]
  - Epistaxis [Recovered/Resolved]
  - Toothache [Recovered/Resolved]
  - Constipation [Recovered/Resolved]
  - Hypertension [Recovered/Resolved]
  - Polyneuropathy [Recovering/Resolving]
  - Neutropenia [Recovered/Resolved]

NARRATIVE: CASE EVENT DATE: 20160727
